FAERS Safety Report 5123112-6 (Version None)
Quarter: 2006Q4

REPORT INFORMATION
  Report Type: 
  Country: None (occurrence: None)
  Receive Date: 20061004
  Receipt Date: 20061004
  Transmission Date: 20070319
  Serious: Yes (Hospitalization)
  Sender: FDA-Public Use
  Company Number: None

PATIENT
  Age: 70 Year
  Sex: Male
  Weight: 118 kg

DRUGS (2)
  1. WARFARIN SODIUM [Suspect]
     Indication: VERTEBROBASILAR INSUFFICIENCY
     Dosage: 9.5 MG BY MOUTH DAILY
     Route: 048
  2. CLOPIDOGREL [Suspect]
     Indication: VERTEBROBASILAR INSUFFICIENCY
     Dosage: 75 MG BY MOUTH DAILY
     Route: 048

REACTIONS (2)
  - CATHETER RELATED COMPLICATION [None]
  - INTERNATIONAL NORMALISED RATIO INCREASED [None]
